FAERS Safety Report 6840275-2 (Version None)
Quarter: 2010Q3

REPORT INFORMATION
  Report Type: 
  Country: None (occurrence: None)
  Receive Date: 20100714
  Receipt Date: 20100629
  Transmission Date: 20110219
  Serious: Yes (Hospitalization)
  Sender: FDA-Public Use
  Company Number: PHHY2010NL42186

PATIENT
  Sex: Male

DRUGS (22)
  1. ZOMETA [Suspect]
     Dosage: 4 MG/5 ML
     Dates: start: 20081219
  2. ZOMETA [Suspect]
     Dosage: 4 MG/5ML
     Dates: start: 20090116
  3. ZOMETA [Suspect]
     Dosage: 4MG/5ML
     Dates: start: 20090213
  4. ZOMETA [Suspect]
     Dosage: 4MG/5ML
     Dates: start: 20090312
  5. ZOMETA [Suspect]
     Dosage: 4MG/5ML
     Dates: start: 20090407
  6. ZOMETA [Suspect]
     Dosage: 4MG/5ML UNK
     Dates: start: 20090505
  7. ZOMETA [Suspect]
     Dosage: 4MG/5ML
     Dates: start: 20090602
  8. ZOMETA [Suspect]
     Dosage: 4MG/5ML
     Dates: start: 20091003
  9. ZOMETA [Suspect]
     Dosage: 4MG/5ML UNK
     Dates: start: 20090729
  10. ZOMETA [Suspect]
     Dosage: 4MG/5ML UNK
     Dates: start: 20090729
  11. ZOMETA [Suspect]
     Dosage: 4MG/5ML UNK
     Dates: start: 20090825
  12. ZOMETA [Suspect]
     Dosage: 4MG/5ML UNK
     Dates: start: 20090825
  13. ZOMETA [Suspect]
     Dosage: 4MG/5ML UNK
     Dates: start: 20090924
  14. ZOMETA [Suspect]
     Dosage: 4MG/5ML UNK
     Dates: start: 20091019
  15. ZOMETA [Suspect]
     Dosage: 4MG/5ML UNK
     Dates: start: 20091106
  16. ZOMETA [Suspect]
     Dosage: 4MG/5ML UNK
     Dates: start: 20091214
  17. ZOMETA [Suspect]
     Dosage: 4MG/5ML UNK
     Dates: start: 20100111
  18. ZOMETA [Suspect]
     Dosage: 4MG/5ML UNK
     Dates: start: 20100208
  19. ZOMETA [Suspect]
     Dosage: 4MG/5ML UNK
     Dates: start: 20100309
  20. ZOMETA [Suspect]
     Dosage: 4MG/5ML UNK
     Dates: start: 20100406
  21. ZOMETA [Suspect]
     Dosage: 4MG/5ML UNK
     Dates: start: 20100507
  22. ZOMETA [Suspect]
     Dosage: 4MG/5ML UNK
     Dates: start: 20100601

REACTIONS (3)
  - DEHYDRATION [None]
  - RENAL IMPAIRMENT [None]
  - VOMITING [None]
